FAERS Safety Report 10278323 (Version 2)
Quarter: 2014Q3

REPORT INFORMATION
  Report Type: Report from Study
  Country: US (occurrence: US)
  Receive Date: 20140704
  Receipt Date: 20140709
  Transmission Date: 20150326
  Serious: No
  Sender: FDA-Public Use
  Company Number: PHEH2014US013205

PATIENT
  Sex: Female

DRUGS (3)
  1. TOBI [Suspect]
     Active Substance: TOBRAMYCIN
     Indication: BRONCHITIS CHRONIC
     Dosage: DOSE INCREASED
  2. TOBI [Suspect]
     Active Substance: TOBRAMYCIN
     Indication: PULMONARY FIBROSIS
  3. TOBI [Suspect]
     Active Substance: TOBRAMYCIN
     Indication: BRONCHIECTASIS
     Dosage: 300 MG/5 ML, EVERY 12 HOURS
     Route: 055

REACTIONS (2)
  - Infection [Unknown]
  - Condition aggravated [Unknown]
